FAERS Safety Report 10488442 (Version 1)
Quarter: 2014Q4

REPORT INFORMATION
  Report Type: Spontaneous
  Country: US (occurrence: None)
  Receive Date: 20141001
  Receipt Date: 20141001
  Transmission Date: 20150528
  Serious: Yes (Other)
  Sender: FDA-Public Use
  Company Number: None

PATIENT
  Age: 43 Year
  Sex: Female
  Weight: 86.18 kg

DRUGS (1)
  1. NORETHINDRONE TABLETS USP [Suspect]
     Active Substance: NORETHINDRONE
     Indication: CONTRACEPTION
     Route: 048
     Dates: start: 20140907, end: 20140914

REACTIONS (5)
  - Insomnia [None]
  - Heart rate increased [None]
  - Feeling jittery [None]
  - Panic attack [None]
  - Blood pressure increased [None]

NARRATIVE: CASE EVENT DATE: 20140915
